FAERS Safety Report 5720778-4 (Version None)
Quarter: 2008Q2

REPORT INFORMATION
  Report Type: 
  Country: None (occurrence: None)
  Receive Date: 20080429
  Receipt Date: 20080421
  Transmission Date: 20081010
  Serious: Yes (Hospitalization, Other)
  Sender: FDA-Public Use
  Company Number: PHHO2006DE20862

PATIENT
  Sex: Female
  Weight: 62 kg

DRUGS (2)
  1. ZOLEDRONIC ACID [Suspect]
     Indication: BREAST CANCER
     Dosage: 4MG EVERY 3 MONTHS
     Route: 042
     Dates: start: 20060925
  2. TAMOXIFEN CITRATE [Suspect]
     Dosage: UNK, UNK
     Dates: start: 20061001, end: 20061211

REACTIONS (2)
  - LOSS OF CONSCIOUSNESS [None]
  - MYOCLONUS [None]
